FAERS Safety Report 20414369 (Version 2)
Quarter: 2022Q1

REPORT INFORMATION
  Report Type: Spontaneous
  Country: JP (occurrence: JP)
  Receive Date: 20220202
  Receipt Date: 20220214
  Transmission Date: 20220423
  Serious: Yes (Hospitalization)
  Sender: FDA-Public Use
  Company Number: JP-LUPIN PHARMACEUTICALS INC.-2022-01225

PATIENT
  Age: 8 Year
  Sex: Male
  Weight: 29 kg

DRUGS (6)
  1. METHYLPREDNISOLONE [Suspect]
     Active Substance: METHYLPREDNISOLONE
     Indication: Liver sarcoidosis
     Dosage: 30 MILLIGRAM/KILOGRAM, QD
     Route: 065
  2. PREDNISOLONE [Suspect]
     Active Substance: PREDNISOLONE
     Indication: Liver sarcoidosis
     Dosage: 2 MILLIGRAM/KILOGRAM, QD
     Route: 065
  3. PREDNISOLONE [Suspect]
     Active Substance: PREDNISOLONE
     Dosage: 0.2 MILLIGRAM/KILOGRAM, QD
     Route: 065
  4. CYCLOSPORINE [Suspect]
     Active Substance: CYCLOSPORINE
     Indication: Liver sarcoidosis
     Dosage: 5 MILLIGRAM/KILOGRAM, QD
     Route: 065
  5. AZATHIOPRINE [Suspect]
     Active Substance: AZATHIOPRINE
     Indication: Liver sarcoidosis
     Dosage: 1 MILLIGRAM/KILOGRAM, QD
     Route: 065
  6. AZATHIOPRINE [Suspect]
     Active Substance: AZATHIOPRINE
     Dosage: 2.2 MILLIGRAM/KILOGRAM, QD
     Route: 065

REACTIONS (1)
  - Off label use [Unknown]
